FAERS Safety Report 6979638-3 (Version None)
Quarter: 2010Q3

REPORT INFORMATION
  Report Type: 
  Country: None (occurrence: None)
  Receive Date: 20100910
  Receipt Date: 20100910
  Transmission Date: 20110219
  Serious: Yes (Other)
  Sender: FDA-Public Use
  Company Number: None

PATIENT
  Sex: Male
  Weight: 106.5953 kg

DRUGS (1)
  1. ZOLOFT [Suspect]
     Indication: ANXIETY
     Dosage: 50-100MG DAILY
     Dates: start: 20070101, end: 20081013

REACTIONS (2)
  - SENSORY LOSS [None]
  - SEXUAL DYSFUNCTION [None]
